FAERS Safety Report 7671259-2 (Version None)
Quarter: 2011Q3

REPORT INFORMATION
  Report Type: 
  Country: None (occurrence: None)
  Receive Date: 20110808
  Receipt Date: 20110808
  Transmission Date: 20111222
  Serious: Yes (Other)
  Sender: FDA-Public Use
  Company Number: None

PATIENT
  Age: 55 Year
  Sex: Female
  Weight: 97.3 kg

DRUGS (1)
  1. PROTONIX [Suspect]
     Indication: GASTROOESOPHAGEAL REFLUX DISEASE
     Dosage: 40MG 1X DAILY ORAL
     Route: 048
     Dates: start: 20110725, end: 20110728

REACTIONS (3)
  - EYE IRRITATION [None]
  - NO REACTION ON PREVIOUS EXPOSURE TO DRUG [None]
  - VITREOUS FLOATERS [None]
